FAERS Safety Report 9526068 (Version 1)
Quarter: 2013Q3

REPORT INFORMATION
  Report Type: Spontaneous
  Country: IT (occurrence: IT)
  Receive Date: 20130916
  Receipt Date: 20130916
  Transmission Date: 20140515
  Serious: Yes (Other)
  Sender: FDA-Public Use
  Company Number: IT-SANOFI-AVENTIS-2013SA089666

PATIENT
  Age: 51 Year
  Sex: Female
  Weight: 66 kg

DRUGS (3)
  1. OXALIPLATIN [Suspect]
     Indication: COLON CANCER METASTATIC
     Dosage: 30 MG/M2 OF BODY SURFACE
     Route: 042
     Dates: start: 20130322, end: 20130809
  2. XELODA [Concomitant]
     Indication: COLON CANCER METASTATIC
     Dosage: STRENGTH: 500MG
     Dates: start: 20130322, end: 20130809
  3. AVASTIN [Concomitant]
     Indication: COLON CANCER METASTATIC
     Dosage: STRENGTH: 400MG
     Dates: start: 20130322, end: 20130809

REACTIONS (2)
  - Mobility decreased [Unknown]
  - Paraesthesia [Unknown]
